FAERS Safety Report 17808888 (Version 1)
Quarter: 2020Q2

REPORT INFORMATION
  Report Type: Other
  Country: ES (occurrence: ES)
  Receive Date: 20200520
  Receipt Date: 20200520
  Transmission Date: 20200714
  Serious: Yes (Other)
  Sender: FDA-Public Use
  Company Number: ES-INNOGENIX, LLC-2084022

PATIENT
  Age: 2 Month
  Sex: Female

DRUGS (3)
  1. PROPRANOLOL HYDROCHLORIDE. [Suspect]
     Active Substance: PROPRANOLOL HYDROCHLORIDE
     Indication: INFANTILE HAEMANGIOMA
     Route: 065
  2. PREDNISOLONE. [Suspect]
     Active Substance: PREDNISOLONE
     Route: 065
  3. SIROLIMUS. [Concomitant]
     Active Substance: SIROLIMUS
     Route: 065

REACTIONS (5)
  - Treatment failure [Unknown]
  - Condition aggravated [Recovered/Resolved]
  - Drug resistance [Unknown]
  - Infantile haemangioma [Recovered/Resolved]
  - Off label use [Unknown]
